FAERS Safety Report 5945447-7 (Version None)
Quarter: 2008Q4

REPORT INFORMATION
  Report Type: 
  Country: None (occurrence: None)
  Receive Date: 20081021
  Receipt Date: 20071012
  Transmission Date: 20090506
  Serious: Yes (Hospitalization)
  Sender: FDA-Public Use
  Company Number: HQWYE033217JUL03

PATIENT
  Age: 63 Year
  Sex: Female
  Weight: 59.02 kg

DRUGS (6)
  1. PREMARIN [Suspect]
     Indication: OESTROGEN REPLACEMENT THERAPY
     Dosage: 0.625 MG DAILY, ORAL
     Route: 048
     Dates: start: 19830101, end: 20000901
  2. CYCRIN [Suspect]
  3. PREMPRO [Suspect]
  4. PROVERA [Suspect]
     Indication: HORMONE REPLACEMENT THERAPY
     Dates: start: 19830101, end: 20000901
  5. UNSPECIFIED ESTROGEN REPLACEMENT THERAPY (UNSPECIFIED ESTROGEN REPLACE [Suspect]
  6. ATENOLOL [Concomitant]

REACTIONS (2)
  - ALOPECIA [None]
  - BREAST CANCER [None]
